FAERS Safety Report 6093716-5 (Version None)
Quarter: 2009Q1

REPORT INFORMATION
  Report Type: 
  Country: None (occurrence: None)
  Receive Date: 20090223
  Receipt Date: 20090223
  Transmission Date: 20090719
  Serious: Yes (Death, Hospitalization)
  Sender: FDA-Public Use
  Company Number: None

PATIENT
  Age: 83 Year
  Sex: Female
  Weight: 110.2241 kg

DRUGS (1)
  1. FENTANYL [Suspect]
     Dosage: PATCH SOLID FOR MORE THAN 10 DAYS

REACTIONS (4)
  - HYPERSOMNIA [None]
  - HYPOPHAGIA [None]
  - ORTHOPNOEA [None]
  - VICTIM OF ELDER ABUSE [None]
